FAERS Safety Report 25480346 (Version 3)
Quarter: 2025Q3

REPORT INFORMATION
  Report Type: Report from Study
  Country: US (occurrence: US)
  Receive Date: 20250625
  Receipt Date: 20250917
  Transmission Date: 20251020
  Serious: Yes (Hospitalization, Other)
  Sender: ALEXION PHARMACEUTICALS
  Company Number: US-AstraZeneca-CH-00791034A

PATIENT
  Sex: Male

DRUGS (1)
  1. SOLIRIS [Suspect]
     Active Substance: ECULIZUMAB
     Indication: Paroxysmal nocturnal haemoglobinuria
     Dates: start: 20070808, end: 20210201

REACTIONS (4)
  - Meningococcal infection [Recovered/Resolved]
  - Testicular swelling [Recovered/Resolved]
  - Feeling abnormal [Unknown]
  - Chromaturia [Unknown]
